FAERS Safety Report 10061665 (Version 1)
Quarter: 2014Q2

REPORT INFORMATION
  Report Type: Spontaneous
  Country: US (occurrence: None)
  Receive Date: 20140404
  Receipt Date: 20140404
  Transmission Date: 20141212
  Serious: Yes (Disabling, Other)
  Sender: FDA-Public Use
  Company Number: None

PATIENT
  Age: 34 Year
  Sex: Female
  Weight: 88.45 kg

DRUGS (1)
  1. MIRALAX [Suspect]
     Indication: CONSTIPATION
     Dates: start: 20140201, end: 20140402

REACTIONS (9)
  - Pollakiuria [None]
  - Rash [None]
  - Nervous system disorder [None]
  - Hyperhidrosis [None]
  - Dizziness [None]
  - Disorientation [None]
  - Feeling of body temperature change [None]
  - Rash generalised [None]
  - Withdrawal syndrome [None]
